FAERS Safety Report 10622049 (Version 1)
Quarter: 2014Q4

REPORT INFORMATION
  Report Type: Spontaneous
  Country: US (occurrence: None)
  Receive Date: 20141201
  Receipt Date: 20141201
  Transmission Date: 20150529
  Serious: Yes (Hospitalization)
  Sender: FDA-Public Use
  Company Number: None

PATIENT
  Age: 24 Year
  Sex: Female

DRUGS (1)
  1. BENTYL [Suspect]
     Active Substance: DICYCLOMINE HYDROCHLORIDE
     Indication: NAUSEA
     Route: 042
     Dates: start: 20141129, end: 20141129

REACTIONS (1)
  - Incorrect route of drug administration [None]

NARRATIVE: CASE EVENT DATE: 20141129
